FAERS Safety Report 15367784 (Version 1)
Quarter: 2018Q3

REPORT INFORMATION
  Report Type: Spontaneous
  Country: FR (occurrence: FR)
  Receive Date: 20180910
  Receipt Date: 20180910
  Transmission Date: 20181010
  Serious: Yes (Other)
  Sender: FDA-Public Use
  Company Number: FR-MYLANLABS-2018M1065880

PATIENT
  Age: 64 Year
  Sex: Female
  Weight: 67 kg

DRUGS (1)
  1. IMATINIB MYLAN 400 MG COMPRIM?S PELLICUL?S [Suspect]
     Active Substance: IMATINIB
     Indication: CHRONIC MYELOID LEUKAEMIA
     Dosage: 400 MG, QD
     Route: 048
     Dates: start: 20180109, end: 20180208

REACTIONS (11)
  - Diarrhoea [Recovered/Resolved]
  - Headache [Recovered/Resolved]
  - Weight decreased [Recovered/Resolved]
  - Eye irritation [Recovered/Resolved]
  - Muscle spasms [Recovered/Resolved]
  - Nausea [Recovered/Resolved]
  - Eyelid oedema [Recovered/Resolved]
  - Chest discomfort [Recovered/Resolved]
  - Product substitution issue [Recovered/Resolved]
  - Musculoskeletal disorder [Recovered/Resolved]
  - Myalgia [Recovered/Resolved]

NARRATIVE: CASE EVENT DATE: 201801
